FAERS Safety Report 17881807 (Version 3)
Quarter: 2020Q4

REPORT INFORMATION
  Report Type: Report from Study
  Country: US (occurrence: US)
  Receive Date: 20200610
  Receipt Date: 20201231
  Transmission Date: 20210113
  Serious: Yes (Other)
  Sender: FDA-Public Use
  Company Number: NVSC2020US161139

PATIENT
  Age: 68 Year
  Sex: Male

DRUGS (1)
  1. GILENYA [Suspect]
     Active Substance: FINGOLIMOD HYDROCHLORIDE
     Indication: MULTIPLE SCLEROSIS
     Dosage: 0.5 MG, QD
     Route: 048
     Dates: start: 2013

REACTIONS (6)
  - Multiple sclerosis relapse [Unknown]
  - COVID-19 [Unknown]
  - Asthenia [Unknown]
  - Fatigue [Unknown]
  - Gastritis [Unknown]
  - Anosmia [Unknown]

NARRATIVE: CASE EVENT DATE: 202010
